FAERS Safety Report 9302194 (Version 4)
Quarter: 2013Q4

REPORT INFORMATION
  Report Type: Spontaneous
  Country: US (occurrence: US)
  Receive Date: 20130522
  Receipt Date: 20131010
  Transmission Date: 20140711
  Serious: No
  Sender: FDA-Public Use
  Company Number: US-009507513-1305USA009331

PATIENT
  Age: 54 Year
  Sex: Female
  Weight: 70.75 kg

DRUGS (5)
  1. VICTRELIS [Suspect]
     Indication: HEPATITIS C
     Dosage: UNK
     Route: 048
     Dates: start: 20130517, end: 20130629
  2. PEGINTRON [Suspect]
     Indication: HEPATITIS C
     Dosage: 0.5 OF 150 MCG, REDIPEN
     Dates: start: 20130419, end: 20130629
  3. PEGINTRON [Suspect]
     Dosage: 0.5 OF 120 MCG, REDIPEN
     Dates: start: 20130621
  4. REBETOL [Suspect]
     Indication: HEPATITIS C
     Dosage: 6 A DAY
     Dates: start: 20130419
  5. REBETOL [Suspect]
     Dosage: 5 A DAY, 2 RIBAVIRIN IN THE MORNING AND 3 RIBAVIRIN IN THE NIGHT
     Dates: start: 20130621, end: 20130629

REACTIONS (38)
  - Asthma [Unknown]
  - Dermatitis acneiform [Unknown]
  - Tracheal disorder [Unknown]
  - Nervous system disorder [Unknown]
  - Gait disturbance [Unknown]
  - Respiratory disorder [Unknown]
  - Arthropod bite [Unknown]
  - Thermal burn [Unknown]
  - Fatigue [Unknown]
  - Upper respiratory tract infection [Unknown]
  - Headache [Unknown]
  - Asthenia [Unknown]
  - Depression [Unknown]
  - Oropharyngeal pain [Unknown]
  - Cough [Unknown]
  - Chest pain [Unknown]
  - Leukopenia [Unknown]
  - White blood cell count decreased [Unknown]
  - Anaemia [Unknown]
  - Haemoglobin decreased [Unknown]
  - Dyspnoea [Unknown]
  - Dizziness [Unknown]
  - Somnolence [Unknown]
  - Fatigue [Unknown]
  - Rash [Unknown]
  - Pruritus [Unknown]
  - Haemoglobin decreased [Unknown]
  - Anaemia [Unknown]
  - Alopecia [Unknown]
  - Abnormal sensation in eye [Unknown]
  - Pain [Unknown]
  - Insomnia [Unknown]
  - White blood cell count decreased [Unknown]
  - Leukopenia [Unknown]
  - Anaemia [Unknown]
  - Haemoglobin decreased [Unknown]
  - Dry skin [Unknown]
  - Anxiety [Unknown]
